FAERS Safety Report 12755701 (Version 3)
Quarter: 2016Q3

REPORT INFORMATION
  Report Type: Spontaneous
  Country: US (occurrence: US)
  Receive Date: 20160916
  Receipt Date: 20160921
  Transmission Date: 20161109
  Serious: No
  Sender: FDA-Public Use
  Company Number: US-BAYER-2016-175506

PATIENT
  Age: 74 Year
  Sex: Female

DRUGS (1)
  1. CLIMARA [Suspect]
     Active Substance: ESTRADIOL
     Dosage: UNK UNK, BIW
     Route: 062

REACTIONS (5)
  - Product quality issue [None]
  - Product use issue [None]
  - Hot flush [None]
  - Paraesthesia [None]
  - Hot flush [Recovering/Resolving]

NARRATIVE: CASE EVENT DATE: 201608
